FAERS Safety Report 8841694 (Version 1)
Quarter: 2012Q4

REPORT INFORMATION
  Report Type: 
  Country: GB (occurrence: GB)
  Receive Date: 20121016
  Receipt Date: 20121016
  Transmission Date: 20130627
  Serious: Yes (Other)
  Sender: FDA-Public Use
  Company Number: GB-ACCORD-014922

PATIENT
  Age: 48 Year
  Sex: Male
  Weight: 72 kg

DRUGS (5)
  1. MAXOLON [Concomitant]
     Indication: NAUSEA
     Dosage: As necessary
     Route: 048
  2. OXALIPLATIN [Suspect]
     Indication: METASTATIC COLORECTAL CANCER
     Route: 042
     Dates: start: 20080305, end: 20081020
  3. FOLINIC ACID [Suspect]
     Indication: METASTATIC COLORECTAL CANCER
     Route: 065
  4. IRINOTECAN HYDROCHLORIDE [Suspect]
     Indication: METASTATIC COLORECTAL CANCER
     Route: 065
  5. FLUOROURACIL [Suspect]
     Indication: METASTATIC COLORECTAL CANCER
     Route: 065

REACTIONS (7)
  - Renal impairment [Recovering/Resolving]
  - Vein pain [Recovering/Resolving]
  - Neuropathy peripheral [Recovering/Resolving]
  - Diarrhoea [Recovering/Resolving]
  - Sinusitis [Recovering/Resolving]
  - Decreased appetite [Recovering/Resolving]
  - Nasopharyngitis [Recovering/Resolving]
